FAERS Safety Report 9977681 (Version 1)
Quarter: 2014Q1

REPORT INFORMATION
  Report Type: Spontaneous
  Country: US (occurrence: US)
  Receive Date: 20140306
  Receipt Date: 20140306
  Transmission Date: 20141002
  Serious: Yes (Other)
  Sender: FDA-Public Use
  Company Number: US-ABBVIE-13P-163-1163299-00

PATIENT
  Age: 57 Year
  Sex: Female
  Weight: 74.91 kg

DRUGS (6)
  1. HUMIRA [Suspect]
     Indication: PSORIASIS
     Dates: start: 201301
  2. HUMIRA [Suspect]
     Indication: PSORIATIC ARTHROPATHY
  3. PROTONIX [Concomitant]
     Indication: DYSPEPSIA
  4. LOSARTAN [Concomitant]
     Indication: HYPERTENSION
  5. ALBUTEROL [Concomitant]
     Indication: ASTHMA
     Dosage: AS NEEDED
  6. LORAZEPAM [Concomitant]
     Indication: ANXIETY
     Dosage: AS NEEDED

REACTIONS (5)
  - Cholelithiasis [Not Recovered/Not Resolved]
  - Pruritus [Not Recovered/Not Resolved]
  - Urticaria [Not Recovered/Not Resolved]
  - Nasopharyngitis [Recovering/Resolving]
  - Injection site urticaria [Not Recovered/Not Resolved]
